FAERS Safety Report 5923759-0 (Version None)
Quarter: 2008Q4

REPORT INFORMATION
  Report Type: 
  Country: None (occurrence: None)
  Receive Date: 20081020
  Receipt Date: 20081007
  Transmission Date: 20090506
  Serious: Yes (Hospitalization)
  Sender: FDA-Public Use
  Company Number: JP-ASTRAZENECA-2008AP07363

PATIENT
  Age: 33 Year
  Sex: Male

DRUGS (5)
  1. SEROQUEL [Interacting]
     Indication: SCHIZOPHRENIA
     Dosage: 25 - 200 MG DIVIDED INTO 2-3 DOSES
     Route: 048
     Dates: start: 20080107, end: 20080904
  2. PAXIL [Interacting]
     Indication: DEPRESSIVE SYMPTOM
     Dosage: 20-40 MG DIVIDED INTO 2 DOSES
     Route: 048
     Dates: start: 20080227, end: 20080904
  3. LULLAN [Suspect]
     Indication: SCHIZOPHRENIA
     Dosage: 8-32 MG/DAY DIVIDED INTO 1-2 DOSES
     Route: 048
     Dates: start: 20080227, end: 20080424
  4. DORAL [Concomitant]
     Indication: INSOMNIA
     Route: 048
     Dates: start: 20080709, end: 20080904
  5. AKINETON [Concomitant]
     Indication: PARKINSONISM
     Dosage: 2-3 MG DIVIDED INTO 2-3 DOSES
     Route: 048
     Dates: start: 20080403, end: 20080807

REACTIONS (5)
  - DEPRESSION [None]
  - DRUG INTERACTION [None]
  - JAUNDICE [None]
  - LIVER DISORDER [None]
  - PARKINSONISM [None]
